FAERS Safety Report 9752460 (Version 1)
Quarter: 2013Q4

REPORT INFORMATION
  Report Type: Spontaneous
  Country: US (occurrence: None)
  Receive Date: 20131212
  Receipt Date: 20131212
  Transmission Date: 20140711
  Serious: No
  Sender: FDA-Public Use
  Company Number: None

PATIENT
  Age: 90 Year
  Sex: Male
  Weight: 79.38 kg

DRUGS (6)
  1. SPIRIVA HANDIHALER [Suspect]
     Indication: RESPIRATORY DISORDER
     Dosage: 18 MCG PER CAPSULE 2 PUFFS DAILY BEDTIME INHALER BY MOUTH USING INHALER DEVICE
     Dates: start: 20130821, end: 20130914
  2. HYDROCHLOROTHIAZIDE [Concomitant]
  3. AMLODPINE BESYLATE [Concomitant]
  4. LISINOPRIL [Concomitant]
  5. CENTRUM SILVER [Concomitant]
  6. ASPIRIN [Concomitant]

REACTIONS (2)
  - Bowel movement irregularity [None]
  - Gastrointestinal motility disorder [None]
